FAERS Safety Report 9404870 (Version 2)
Quarter: 2013Q3

REPORT INFORMATION
  Report Type: Spontaneous
  Country: US (occurrence: US)
  Receive Date: 20130717
  Receipt Date: 20130722
  Transmission Date: 20140515
  Serious: No
  Sender: FDA-Public Use
  Company Number: US-009507513-1306USA009422

PATIENT
  Sex: Female
  Weight: 99.32 kg

DRUGS (1)
  1. IMPLANON [Suspect]
     Indication: CONTRACEPTION
     Dosage: 1 DF, UNK
     Route: 059
     Dates: start: 20100514

REACTIONS (6)
  - Weight increased [Not Recovered/Not Resolved]
  - Medical device complication [Not Recovered/Not Resolved]
  - Device deployment issue [Not Recovered/Not Resolved]
  - Device difficult to use [Recovered/Resolved]
  - Device dislocation [Not Recovered/Not Resolved]
  - Incorrect drug administration duration [Unknown]
